FAERS Safety Report 8001766 (Version 2)
Quarter: 2020Q3

REPORT INFORMATION
  Report Type: Report from Study
  Country: US (occurrence: US)
  Receive Date: 20110622
  Receipt Date: 20110622
  Transmission Date: 20201105
  Serious: Yes (Death, Life-Threatening, Hospitalization)
  Sender: FDA-Public Use
  Company Number: US-ROCHE-782857

PATIENT
  Age: 47 Year

DRUGS (2)
  1. BEVACIZUMAB. [Suspect]
     Active Substance: BEVACIZUMAB
     Dosage: OVER 90?30 MIN ON DAY 1 AND 15
     Route: 042
     Dates: start: 20100210
  2. CEDIRANIB. [Suspect]
     Active Substance: CEDIRANIB
     Dosage: LASTE RECEIVED ON 17 MARCH 2010, RECEIVED ON DAY1? 21 OF CYCLE
     Route: 048
     Dates: start: 20100210, end: 20100317

REACTIONS (5)
  - Cerebrovascular accident [Fatal]
  - Blindness [Unknown]
  - Seizure [Unknown]
  - Cerebral ischaemia [Unknown]
  - Encephalopathy [Unknown]

NARRATIVE: CASE EVENT DATE: 20100318
